FAERS Safety Report 5334050-8 (Version None)
Quarter: 2007Q2

REPORT INFORMATION
  Report Type: 
  Country: None (occurrence: None)
  Receive Date: 20070524
  Receipt Date: 20070516
  Transmission Date: 20071010
  Serious: Yes (Other)
  Sender: FDA-Public Use
  Company Number: US-PFIZER INC-2007040033

PATIENT
  Sex: Female
  Weight: 49.09 kg

DRUGS (1)
  1. CHANTIX [Suspect]
     Indication: SMOKING CESSATION THERAPY
     Dosage: TEXT:EVERY DAY
     Dates: start: 20070507, end: 20070512

REACTIONS (8)
  - ANOREXIA [None]
  - BACK PAIN [None]
  - BIPOLAR DISORDER [None]
  - CONSTIPATION [None]
  - FLATULENCE [None]
  - GASTROINTESTINAL PAIN [None]
  - HYPOKINESIA [None]
  - NAUSEA [None]
